FAERS Safety Report 6452598-X (Version None)
Quarter: 2009Q4

REPORT INFORMATION
  Report Type: 
  Country: None (occurrence: None)
  Receive Date: 20091124
  Receipt Date: 20091116
  Transmission Date: 20100525
  Serious: Yes (Hospitalization)
  Sender: FDA-Public Use
  Company Number: US-BIOGENIDEC-153493

PATIENT
  Age: 48 Year
  Sex: Female
  Weight: 72 kg

DRUGS (5)
  1. AVONEX [Suspect]
     Indication: MULTIPLE SCLEROSIS
     Route: 030
     Dates: start: 19990201, end: 20030101
  2. AVONEX [Suspect]
     Route: 030
     Dates: start: 20030101
  3. CLONAZEPAM [Concomitant]
     Indication: MUSCLE SPASTICITY
     Dates: start: 20000101
  4. BACLOFEN [Concomitant]
     Indication: MUSCLE SPASTICITY
     Dates: start: 20000101
  5. ALLEGRA [Concomitant]
     Indication: MULTIPLE ALLERGIES
     Dates: start: 20000101

REACTIONS (1)
  - UTERINE LEIOMYOMA [None]
